FAERS Safety Report 9239585 (Version 2)
Quarter: 2013Q2

REPORT INFORMATION
  Report Type: Spontaneous
  Country: US (occurrence: US)
  Receive Date: 20130418
  Receipt Date: 20130607
  Transmission Date: 20140414
  Serious: Yes (Other)
  Sender: FDA-Public Use
  Company Number: US-BANPHARM-20131157

PATIENT
  Age: 40 Year
  Sex: Male
  Weight: 106.59 kg

DRUGS (1)
  1. ALEVE LIQUID GELS 220 MG [Suspect]
     Indication: PAIN
     Dosage: 1 DF,ONCE,
     Route: 048
     Dates: start: 20130401, end: 20130401

REACTIONS (9)
  - Speech disorder [Recovered/Resolved]
  - Dyspnoea [Recovered/Resolved]
  - Blood pressure increased [Recovered/Resolved]
  - Rash maculo-papular [Recovered/Resolved]
  - Local swelling [Recovered/Resolved]
  - Lip swelling [Recovered/Resolved]
  - Feeling hot [Recovered/Resolved]
  - Generalised erythema [Recovered/Resolved]
  - Nausea [Recovered/Resolved]
